FAERS Safety Report 12549558 (Version 1)
Quarter: 2016Q3

REPORT INFORMATION
  Report Type: Spontaneous
  Country: US (occurrence: US)
  Receive Date: 20160712
  Receipt Date: 20160712
  Transmission Date: 20161109
  Serious: Yes (Other)
  Sender: FDA-Public Use
  Company Number: US-PERNIX THERAPEUTICS-2014SO000028

PATIENT

DRUGS (4)
  1. LAMICTAL [Suspect]
     Active Substance: LAMOTRIGINE
     Dosage: 200 MG, UNK
     Dates: start: 20120126
  2. LAMICTAL [Suspect]
     Active Substance: LAMOTRIGINE
     Indication: BIPOLAR DISORDER
     Dosage: 100 MG, UNK
     Route: 065
     Dates: start: 20111207
  3. CONCERTA [Suspect]
     Active Substance: METHYLPHENIDATE HYDROCHLORIDE
     Indication: ATTENTION DEFICIT/HYPERACTIVITY DISORDER
  4. TREXIMET [Suspect]
     Active Substance: NAPROXEN SODIUM\SUMATRIPTAN SUCCINATE
     Indication: PRODUCT USED FOR UNKNOWN INDICATION
     Dosage: ^85 MG^, UNK
     Route: 065
     Dates: start: 20121010

REACTIONS (4)
  - Pneumonia [Unknown]
  - Drug dose omission [Unknown]
  - Anxiety [Unknown]
  - Gallbladder operation [Unknown]

NARRATIVE: CASE EVENT DATE: 2015
